FAERS Safety Report 24995876 (Version 4)
Quarter: 2025Q1

REPORT INFORMATION
  Report Type: Spontaneous
  Country: FR (occurrence: FR)
  Receive Date: 20250221
  Receipt Date: 20250327
  Transmission Date: 20250409
  Serious: Yes (Other)
  Sender: MYLAN
  Company Number: None

PATIENT
  Age: 26 Year
  Sex: Female
  Weight: 44.5 kg

DRUGS (48)
  1. FORMOTEROL [Suspect]
     Active Substance: FORMOTEROL
     Indication: Cystic fibrosis
     Dates: start: 20240415, end: 20250109
  2. FORMOTEROL [Suspect]
     Active Substance: FORMOTEROL
     Route: 065
     Dates: start: 20240415, end: 20250109
  3. FORMOTEROL [Suspect]
     Active Substance: FORMOTEROL
     Route: 065
     Dates: start: 20240415, end: 20250109
  4. FORMOTEROL [Suspect]
     Active Substance: FORMOTEROL
     Dates: start: 20240415, end: 20250109
  5. CHOLECALCIFEROL [Suspect]
     Active Substance: CHOLECALCIFEROL
     Indication: Vitamin supplementation
     Dosage: 2 DOSAGE FORM, MONTHLY
     Dates: start: 20240415, end: 20250109
  6. CHOLECALCIFEROL [Suspect]
     Active Substance: CHOLECALCIFEROL
     Dosage: 2 DOSAGE FORM, MONTHLY
     Route: 065
     Dates: start: 20240415, end: 20250109
  7. CHOLECALCIFEROL [Suspect]
     Active Substance: CHOLECALCIFEROL
     Dosage: 2 DOSAGE FORM, MONTHLY
     Route: 065
     Dates: start: 20240415, end: 20250109
  8. CHOLECALCIFEROL [Suspect]
     Active Substance: CHOLECALCIFEROL
     Dosage: 2 DOSAGE FORM, MONTHLY
     Dates: start: 20240415, end: 20250109
  9. DESLORATADINE [Suspect]
     Active Substance: DESLORATADINE
     Indication: Product used for unknown indication
     Dosage: 1 DOSAGE FORM, QD
     Dates: start: 20240415, end: 20250109
  10. DESLORATADINE [Suspect]
     Active Substance: DESLORATADINE
     Dosage: 1 DOSAGE FORM, QD
     Route: 065
     Dates: start: 20240415, end: 20250109
  11. DESLORATADINE [Suspect]
     Active Substance: DESLORATADINE
     Dosage: 1 DOSAGE FORM, QD
     Route: 065
     Dates: start: 20240415, end: 20250109
  12. DESLORATADINE [Suspect]
     Active Substance: DESLORATADINE
     Dosage: 1 DOSAGE FORM, QD
     Dates: start: 20240415, end: 20250109
  13. BUDESONIDE [Suspect]
     Active Substance: BUDESONIDE
     Indication: Cystic fibrosis
     Dates: start: 20240415, end: 20250109
  14. BUDESONIDE [Suspect]
     Active Substance: BUDESONIDE
     Route: 065
     Dates: start: 20240415, end: 20250109
  15. BUDESONIDE [Suspect]
     Active Substance: BUDESONIDE
     Route: 065
     Dates: start: 20240415, end: 20250109
  16. BUDESONIDE [Suspect]
     Active Substance: BUDESONIDE
     Dates: start: 20240415, end: 20250109
  17. ESOMEPRAZOLE [Suspect]
     Active Substance: ESOMEPRAZOLE
     Indication: Cystic fibrosis
     Dosage: 20 MILLIGRAM, QD
     Dates: start: 20240415, end: 20250109
  18. ESOMEPRAZOLE [Suspect]
     Active Substance: ESOMEPRAZOLE
     Dosage: 20 MILLIGRAM, QD
     Route: 065
     Dates: start: 20240415, end: 20250109
  19. ESOMEPRAZOLE [Suspect]
     Active Substance: ESOMEPRAZOLE
     Dosage: 20 MILLIGRAM, QD
     Route: 065
     Dates: start: 20240415, end: 20250109
  20. ESOMEPRAZOLE [Suspect]
     Active Substance: ESOMEPRAZOLE
     Dosage: 20 MILLIGRAM, QD
     Dates: start: 20240415, end: 20250109
  21. ELEXACAFTOR\IVACAFTOR\TEZACAFTOR [Suspect]
     Active Substance: ELEXACAFTOR\IVACAFTOR\TEZACAFTOR
     Indication: Cystic fibrosis
     Dosage: 2 DOSAGE FORM, QD
     Dates: start: 20240415, end: 20250109
  22. ELEXACAFTOR\IVACAFTOR\TEZACAFTOR [Suspect]
     Active Substance: ELEXACAFTOR\IVACAFTOR\TEZACAFTOR
     Dosage: 2 DOSAGE FORM, QD
     Route: 065
     Dates: start: 20240415, end: 20250109
  23. ELEXACAFTOR\IVACAFTOR\TEZACAFTOR [Suspect]
     Active Substance: ELEXACAFTOR\IVACAFTOR\TEZACAFTOR
     Dosage: 2 DOSAGE FORM, QD
     Route: 065
     Dates: start: 20240415, end: 20250109
  24. ELEXACAFTOR\IVACAFTOR\TEZACAFTOR [Suspect]
     Active Substance: ELEXACAFTOR\IVACAFTOR\TEZACAFTOR
     Dosage: 2 DOSAGE FORM, QD
     Dates: start: 20240415, end: 20250109
  25. KALYDECO [Suspect]
     Active Substance: IVACAFTOR
     Indication: Cystic fibrosis
     Dosage: 150 MILLIGRAM, QD
     Dates: start: 20240415, end: 20250109
  26. KALYDECO [Suspect]
     Active Substance: IVACAFTOR
     Dosage: 150 MILLIGRAM, QD
     Route: 065
     Dates: start: 20240415, end: 20250109
  27. KALYDECO [Suspect]
     Active Substance: IVACAFTOR
     Dosage: 150 MILLIGRAM, QD
     Route: 065
     Dates: start: 20240415, end: 20250109
  28. KALYDECO [Suspect]
     Active Substance: IVACAFTOR
     Dosage: 150 MILLIGRAM, QD
     Dates: start: 20240415, end: 20250109
  29. PANCRELIPASE [Suspect]
     Active Substance: PANCRELIPASE
     Indication: Cystic fibrosis
     Dosage: 12 DOSAGE FORM, QD
     Dates: start: 20240415, end: 20250109
  30. PANCRELIPASE [Suspect]
     Active Substance: PANCRELIPASE
     Dosage: 12 DOSAGE FORM, QD
     Route: 065
     Dates: start: 20240415, end: 20250109
  31. PANCRELIPASE [Suspect]
     Active Substance: PANCRELIPASE
     Dosage: 12 DOSAGE FORM, QD
     Route: 065
     Dates: start: 20240415, end: 20250109
  32. PANCRELIPASE [Suspect]
     Active Substance: PANCRELIPASE
     Dosage: 12 DOSAGE FORM, QD
     Dates: start: 20240415, end: 20250109
  33. TRIAMCINOLONE [Suspect]
     Active Substance: TRIAMCINOLONE
     Indication: Cystic fibrosis
     Dosage: 2 DOSAGE FORM, QD
     Dates: start: 20240415, end: 20250109
  34. TRIAMCINOLONE [Suspect]
     Active Substance: TRIAMCINOLONE
     Dosage: 2 DOSAGE FORM, QD
     Route: 065
     Dates: start: 20240415, end: 20250109
  35. TRIAMCINOLONE [Suspect]
     Active Substance: TRIAMCINOLONE
     Dosage: 2 DOSAGE FORM, QD
     Route: 065
     Dates: start: 20240415, end: 20250109
  36. TRIAMCINOLONE [Suspect]
     Active Substance: TRIAMCINOLONE
     Dosage: 2 DOSAGE FORM, QD
     Dates: start: 20240415, end: 20250109
  37. IVACAFTOR\LUMACAFTOR [Suspect]
     Active Substance: IVACAFTOR\LUMACAFTOR
     Indication: Cystic fibrosis
  38. IVACAFTOR\LUMACAFTOR [Suspect]
     Active Substance: IVACAFTOR\LUMACAFTOR
     Route: 065
  39. IVACAFTOR\LUMACAFTOR [Suspect]
     Active Substance: IVACAFTOR\LUMACAFTOR
     Route: 065
  40. IVACAFTOR\LUMACAFTOR [Suspect]
     Active Substance: IVACAFTOR\LUMACAFTOR
  41. PANCRELIPASE [Suspect]
     Active Substance: PANCRELIPASE
     Indication: Cystic fibrosis
     Dosage: 12 DOSAGE FORM, QD
     Dates: start: 20240415, end: 20250109
  42. PANCRELIPASE [Suspect]
     Active Substance: PANCRELIPASE
     Dosage: 12 DOSAGE FORM, QD
     Route: 065
     Dates: start: 20240415, end: 20250109
  43. PANCRELIPASE [Suspect]
     Active Substance: PANCRELIPASE
     Dosage: 12 DOSAGE FORM, QD
     Route: 065
     Dates: start: 20240415, end: 20250109
  44. PANCRELIPASE [Suspect]
     Active Substance: PANCRELIPASE
     Dosage: 12 DOSAGE FORM, QD
     Dates: start: 20240415, end: 20250109
  45. BUDESONIDE\FORMOTEROL\GLYCOPYRRONIUM [Suspect]
     Active Substance: BUDESONIDE\FORMOTEROL\GLYCOPYRRONIUM
     Indication: Product used for unknown indication
     Dates: start: 20240415, end: 20250109
  46. BUDESONIDE\FORMOTEROL\GLYCOPYRRONIUM [Suspect]
     Active Substance: BUDESONIDE\FORMOTEROL\GLYCOPYRRONIUM
     Route: 065
     Dates: start: 20240415, end: 20250109
  47. BUDESONIDE\FORMOTEROL\GLYCOPYRRONIUM [Suspect]
     Active Substance: BUDESONIDE\FORMOTEROL\GLYCOPYRRONIUM
     Route: 065
     Dates: start: 20240415, end: 20250109
  48. BUDESONIDE\FORMOTEROL\GLYCOPYRRONIUM [Suspect]
     Active Substance: BUDESONIDE\FORMOTEROL\GLYCOPYRRONIUM
     Dates: start: 20240415, end: 20250109

REACTIONS (2)
  - Pericardial effusion [Recovered/Resolved]
  - Maternal exposure during pregnancy [Recovered/Resolved]

NARRATIVE: CASE EVENT DATE: 20240415
